FAERS Safety Report 8608219 (Version 3)
Quarter: 2014Q1

REPORT INFORMATION
  Report Type: Spontaneous
  Country: US (occurrence: US)
  Receive Date: 20120611
  Receipt Date: 20140128
  Transmission Date: 20141002
  Serious: Yes (Hospitalization, Disabling, Other)
  Sender: FDA-Public Use
  Company Number: US-ASTRAZENECA-2012SE35176

PATIENT
  Age: 53 Year
  Sex: Female

DRUGS (25)
  1. NEXIUM [Suspect]
     Indication: GASTROOESOPHAGEAL REFLUX DISEASE
     Dosage: ONE OR TWO TIMES
     Route: 048
     Dates: start: 2001, end: 2006
  2. PRILOSEC [Suspect]
     Route: 048
  3. PREVACID [Concomitant]
     Indication: GASTROOESOPHAGEAL REFLUX DISEASE
  4. ZANTAC/RANITIDINE [Concomitant]
     Indication: GASTROOESOPHAGEAL REFLUX DISEASE
  5. PEPCID [Concomitant]
  6. TUMS [Concomitant]
  7. ALKA-SELTZER [Concomitant]
  8. MILK OF MAGNESIA [Concomitant]
  9. GAVISCON [Concomitant]
  10. PEPTO BISMOL [Concomitant]
  11. ROLAIDS [Concomitant]
  12. MYLANTA [Concomitant]
     Dosage: WHEN NEEDED
  13. CYCLOBENZAPRINE [Concomitant]
     Indication: MUSCLE DISORDER
  14. ETODOLAC [Concomitant]
     Indication: INFLAMMATION
  15. TEMAZEPAM [Concomitant]
  16. KADIAN [Concomitant]
  17. LORTAB [Concomitant]
     Indication: PAIN
     Dosage: 10MG EVERY 4HRS IF NEEDED
  18. CITRACAL [Concomitant]
  19. ALPRAZOLAM [Concomitant]
     Dates: start: 20070403
  20. ACIPHEX [Concomitant]
     Dates: start: 20080211
  21. LEXAPRO [Concomitant]
     Dates: start: 20080424
  22. CYMBALTA [Concomitant]
     Dates: start: 20081128
  23. VITAMIN C [Concomitant]
     Dates: start: 20100505
  24. VITAMIN E [Concomitant]
     Dosage: DAILY
  25. PERCOCET [Concomitant]

REACTIONS (20)
  - Femur fracture [Unknown]
  - Spinal fracture [Unknown]
  - Fall [Unknown]
  - Back disorder [Unknown]
  - Limb discomfort [Unknown]
  - Diverticulitis [Unknown]
  - Colitis [Unknown]
  - Gastric disorder [Unknown]
  - Osteoporosis [Unknown]
  - Wrist fracture [Unknown]
  - Arthritis [Unknown]
  - Vitamin D deficiency [Unknown]
  - Depression [Unknown]
  - Impaired healing [Unknown]
  - Osteoarthritis [Unknown]
  - Lumbar spinal stenosis [Unknown]
  - Haemangioma of bone [Unknown]
  - Intervertebral disc protrusion [Unknown]
  - Intervertebral disc degeneration [Unknown]
  - Hypertrophy [Unknown]
